FAERS Safety Report 17846615 (Version 1)
Quarter: 2020Q2

REPORT INFORMATION
  Report Type: Spontaneous
  Country: CA (occurrence: CA)
  Receive Date: 20200601
  Receipt Date: 20200601
  Transmission Date: 20200714
  Serious: Yes (Death, Other)
  Sender: FDA-Public Use
  Company Number: CA-TEVA-2020-CA-1241489

PATIENT
  Age: 65 Year
  Sex: Female
  Weight: 68 kg

DRUGS (12)
  1. ATIVAN [Concomitant]
     Active Substance: LORAZEPAM
  2. IRBESARTAN. [Concomitant]
     Active Substance: IRBESARTAN
  3. PACLITAXEL. [Suspect]
     Active Substance: PACLITAXEL
     Indication: BREAST CANCER FEMALE
     Route: 042
  4. HYDROCHLOROTHIAZIDE. [Concomitant]
     Active Substance: HYDROCHLOROTHIAZIDE
  5. CANDESARTAN. [Concomitant]
     Active Substance: CANDESARTAN
  6. FELODIPINE. [Concomitant]
     Active Substance: FELODIPINE
     Indication: BREAST CANCER FEMALE
  7. FERROUS SULFATE. [Concomitant]
     Active Substance: FERROUS SULFATE
     Indication: BREAST CANCER FEMALE
     Route: 042
  8. EMEND [Concomitant]
     Active Substance: APREPITANT
  9. NIFEDIPINE. [Concomitant]
     Active Substance: NIFEDIPINE
  10. LASIX [Concomitant]
     Active Substance: FUROSEMIDE
  11. LIPITOR [Concomitant]
     Active Substance: ATORVASTATIN CALCIUM
  12. PANTOPRAZOLE MAGNESIUM [Concomitant]
     Active Substance: PANTOPRAZOLE MAGNESIUM

REACTIONS (5)
  - Anaphylactic reaction [Fatal]
  - Altered state of consciousness [Fatal]
  - Cardiac arrest [Fatal]
  - Seizure [Fatal]
  - Coronary artery occlusion [Fatal]
